FAERS Safety Report 9125329 (Version 1)
Quarter: 2013Q1

REPORT INFORMATION
  Report Type: Spontaneous
  Country: US (occurrence: US)
  Receive Date: 20130227
  Receipt Date: 20130227
  Transmission Date: 20140127
  Serious: Yes (Hospitalization)
  Sender: FDA-Public Use
  Company Number: US-GLAXOSMITHKLINE-A0725156A

PATIENT
  Age: 53 Year
  Sex: Male
  Weight: 118.2 kg

DRUGS (4)
  1. AVANDIA [Suspect]
     Indication: TYPE 2 DIABETES MELLITUS
     Dosage: 8MG PER DAY
     Route: 048
     Dates: start: 20000313, end: 20070609
  2. METFORMIN [Concomitant]
     Dates: start: 20020222, end: 20040102
  3. LANTUS [Concomitant]
     Dates: start: 20040108
  4. AMARYL [Concomitant]
     Dates: start: 20051025

REACTIONS (2)
  - Myocardial infarction [Not Recovered/Not Resolved]
  - Heart injury [Unknown]
